FAERS Safety Report 6293886-X (Version None)
Quarter: 2009Q3

REPORT INFORMATION
  Report Type: 
  Country: None (occurrence: None)
  Receive Date: 20090731
  Receipt Date: 20090731
  Transmission Date: 20100115
  Serious: Yes (Other)
  Sender: FDA-Public Use
  Company Number: None

PATIENT
  Sex: Female
  Weight: 68.0396 kg

DRUGS (2)
  1. LAMOTRIGINE [Suspect]
     Dosage: 200MG T BID PO
     Route: 048
     Dates: start: 20090415, end: 20090505
  2. LAMOTRIGINE [Suspect]
     Dosage: 200MG T BID PO
     Route: 048
     Dates: start: 20080901

REACTIONS (4)
  - DEPRESSION [None]
  - NO THERAPEUTIC RESPONSE [None]
  - PRODUCT SUBSTITUTION ISSUE [None]
  - VISUAL IMPAIRMENT [None]
